FAERS Safety Report 20907084 (Version 1)
Quarter: 2022Q2

REPORT INFORMATION
  Report Type: Spontaneous
  Country: US (occurrence: US)
  Receive Date: 20220602
  Receipt Date: 20220602
  Transmission Date: 20220720
  Serious: Yes (Other)
  Sender: FDA-Public Use
  Company Number: US-INCYTE CORPORATION-2022IN005296

PATIENT

DRUGS (5)
  1. JAKAFI [Suspect]
     Active Substance: RUXOLITINIB
     Indication: Polycythaemia vera
     Dosage: UNK
     Route: 048
     Dates: start: 2015
  2. JAKAFI [Suspect]
     Active Substance: RUXOLITINIB
     Dosage: 15 MILLIGRAM, BID
     Route: 065
  3. JAKAFI [Suspect]
     Active Substance: RUXOLITINIB
     Dosage: UNK
     Route: 048
  4. JAKAFI [Suspect]
     Active Substance: RUXOLITINIB
     Dosage: 10 MILLIGRAM
     Route: 065
  5. JAKAFI [Suspect]
     Active Substance: RUXOLITINIB
     Dosage: 10MG IN THE MORNING AND 5 MG AT NIGHT
     Route: 048

REACTIONS (15)
  - Urinary retention [Recovered/Resolved]
  - Fatigue [Unknown]
  - Apathy [Unknown]
  - Confusional state [Recovering/Resolving]
  - Muscular weakness [Unknown]
  - Asthenia [Unknown]
  - Decreased appetite [Unknown]
  - Iron deficiency [Unknown]
  - Feeling abnormal [Unknown]
  - General physical condition abnormal [Unknown]
  - Abdominal discomfort [Unknown]
  - Night sweats [Recovered/Resolved]
  - Micturition urgency [Recovered/Resolved]
  - Intentional product use issue [Unknown]
  - Platelet count decreased [Not Recovered/Not Resolved]
